FAERS Safety Report 6726373-2 (Version None)
Quarter: 2010Q2

REPORT INFORMATION
  Report Type: 
  Country: None (occurrence: None)
  Receive Date: 20100514
  Receipt Date: 20100508
  Transmission Date: 20101027
  Serious: Yes (Other)
  Sender: FDA-Public Use
  Company Number: A0859499A

PATIENT
  Sex: Female
  Weight: 35 kg

DRUGS (3)
  1. SERETIDE [Suspect]
     Route: 055
     Dates: start: 20080501, end: 20080501
  2. AZITHROMYCIN [Concomitant]
  3. BUDECORT [Concomitant]
     Route: 045

REACTIONS (2)
  - CARDIO-RESPIRATORY ARREST [None]
  - RESUSCITATION [None]
